FAERS Safety Report 9277145 (Version 1)
Quarter: 2013Q2

REPORT INFORMATION
  Report Type: Spontaneous
  Country: FR (occurrence: FR)
  Receive Date: 20130508
  Receipt Date: 20130508
  Transmission Date: 20140414
  Serious: Yes (Hospitalization)
  Sender: FDA-Public Use
  Company Number: FR-MYLANLABS-2013S1009307

PATIENT
  Age: 74 Year
  Sex: Female

DRUGS (2)
  1. XANAX [Suspect]
     Dosage: THREE TIMES A DAY
     Route: 065
  2. ALPRAZOLAM [Suspect]
     Dosage: THREE TIMES A DAY
     Route: 065

REACTIONS (2)
  - Mobility decreased [Recovered/Resolved]
  - Product substitution issue [Recovered/Resolved]
